FAERS Safety Report 9555519 (Version 1)
Quarter: 2013Q3

REPORT INFORMATION
  Report Type: Spontaneous
  Country: US (occurrence: None)
  Receive Date: 20130815
  Receipt Date: 20130815
  Transmission Date: 20140515
  Serious: Yes (Other)
  Sender: FDA-Public Use
  Company Number: ADR-2012-01579

PATIENT
  Sex: Male

DRUGS (4)
  1. BACLOFEN INTRATHECAL (BACLOFEN INJECTION) [Suspect]
     Indication: PAIN
  2. BACLOFEN INTRATHECAL (BACLOFEN INJECTION) [Suspect]
     Indication: SPINAL LAMINECTOMY
  3. DILAUDID (HYDROMORPHONE) [Concomitant]
  4. PRIALT (ZICONITIDE) [Concomitant]

REACTIONS (2)
  - Pain [None]
  - Therapeutic response decreased [None]
